FAERS Safety Report 12458744 (Version 5)
Quarter: 2016Q3

REPORT INFORMATION
  Report Type: Spontaneous
  Country: US (occurrence: US)
  Receive Date: 20160613
  Receipt Date: 20160909
  Transmission Date: 20161109
  Serious: Yes (Hospitalization, Other)
  Sender: FDA-Public Use
  Company Number: US-TEVA-667191ACC

PATIENT
  Age: 25 Year
  Sex: Female
  Weight: 59.93 kg

DRUGS (1)
  1. PARAGARD T 380A [Suspect]
     Active Substance: COPPER
     Indication: CONTRACEPTION
     Dates: start: 20140415, end: 20160421

REACTIONS (14)
  - Device dislocation [Recovered/Resolved]
  - Embedded device [Recovered/Resolved]
  - Coital bleeding [Unknown]
  - Pregnancy on contraceptive [Unknown]
  - Abortion induced [Unknown]
  - Neck pain [Unknown]
  - Exposure during pregnancy [Unknown]
  - Emotional distress [Unknown]
  - Muscle spasms [Recovered/Resolved]
  - Vaginal haemorrhage [Recovered/Resolved]
  - Breast tenderness [Recovered/Resolved]
  - Drug ineffective [Unknown]
  - Pain [Recovered/Resolved]
  - Device breakage [Unknown]

NARRATIVE: CASE EVENT DATE: 201604
